FAERS Safety Report 16942804 (Version 4)
Quarter: 2019Q4

REPORT INFORMATION
  Report Type: Spontaneous
  Country: US (occurrence: US)
  Receive Date: 20191021
  Receipt Date: 20191219
  Transmission Date: 20200122
  Serious: Yes (Other)
  Sender: FDA-Public Use
  Company Number: US-PURDUE-USA-2019-0148756

PATIENT
  Sex: Male

DRUGS (1)
  1. OXYCONTIN [Suspect]
     Active Substance: OXYCODONE HYDROCHLORIDE
     Indication: PRODUCT USED FOR UNKNOWN INDICATION
     Dosage: UNK
     Route: 064

REACTIONS (12)
  - Oesophageal disorder [Unknown]
  - Diabetes mellitus [Not Recovered/Not Resolved]
  - Foetal exposure during pregnancy [Unknown]
  - Dyspnoea [Unknown]
  - Gastrooesophageal reflux disease [Unknown]
  - Physical disability [Not Recovered/Not Resolved]
  - Procedural complication [Not Recovered/Not Resolved]
  - Cold sweat [Not Recovered/Not Resolved]
  - Congenital aortic anomaly [Unknown]
  - Near death experience [Unknown]
  - Aneurysm [Not Recovered/Not Resolved]
  - Vomiting [Unknown]

NARRATIVE: CASE EVENT DATE: 20160215
